FAERS Safety Report 8195553-4 (Version None)
Quarter: 2012Q1

REPORT INFORMATION
  Report Type: 
  Country: None (occurrence: None)
  Receive Date: 20120308
  Receipt Date: 20120306
  Transmission Date: 20120608
  Serious: Yes (Other)
  Sender: FDA-Public Use
  Company Number: PHEH2012US005137

PATIENT
  Sex: Female

DRUGS (8)
  1. DIOVAN HCT [Suspect]
     Dosage: 1 DF (160/25 MG), PER DAY
     Dates: start: 20111222
  2. DEXILANT [Concomitant]
  3. BUPROPION HCL [Concomitant]
  4. OXYCODONE HCL [Concomitant]
  5. CRESTOR [Concomitant]
  6. TOPIRAMATE [Concomitant]
  7. DILTIAZEM HCL [Concomitant]
  8. ACYCLOVIR [Concomitant]

REACTIONS (1)
  - HERPES ZOSTER [None]
